FAERS Safety Report 11939311 (Version 4)
Quarter: 2016Q4

REPORT INFORMATION
  Report Type: Spontaneous
  Country: US (occurrence: US)
  Receive Date: 20160122
  Receipt Date: 20161024
  Transmission Date: 20170206
  Serious: No
  Sender: FDA-Public Use
  Company Number: US-ACTELION PHARMACEUTICALS US, INC.-A-US2016-130118

PATIENT
  Age: 64 Year
  Sex: Female

DRUGS (4)
  1. RIOCIGUAT [Concomitant]
     Active Substance: RIOCIGUAT
  2. DILTIAZEM. [Concomitant]
     Active Substance: DILTIAZEM
  3. WARFARIN [Concomitant]
     Active Substance: WARFARIN
  4. TRACLEER [Suspect]
     Active Substance: BOSENTAN
     Indication: PULMONARY ARTERIAL HYPERTENSION
     Dosage: 125 MG, BID
     Route: 048

REACTIONS (5)
  - Dyspnoea exertional [Unknown]
  - Blood pressure abnormal [Unknown]
  - Dizziness [Unknown]
  - Sinus disorder [Unknown]
  - Hypotension [Unknown]

NARRATIVE: CASE EVENT DATE: 201512
